FAERS Safety Report 12504314 (Version 7)
Quarter: 2016Q4

REPORT INFORMATION
  Report Type: Spontaneous
  Country: US (occurrence: US)
  Receive Date: 20160628
  Receipt Date: 20161115
  Transmission Date: 20170207
  Serious: No
  Sender: FDA-Public Use
  Company Number: US-PFIZER INC-2016310217

PATIENT
  Age: 75 Year
  Sex: Female
  Weight: 115 kg

DRUGS (11)
  1. LEVOTHYROXINE. [Concomitant]
     Active Substance: LEVOTHYROXINE
     Dosage: UNK
     Dates: start: 201603
  2. PRILOSEC [Concomitant]
     Active Substance: OMEPRAZOLE MAGNESIUM
     Dosage: UNK
     Dates: start: 2006
  3. MELATONIN [Concomitant]
     Active Substance: MELATONIN
     Dosage: UNK
     Dates: start: 201606
  4. MELOXICAM. [Concomitant]
     Active Substance: MELOXICAM
     Dosage: UNK, AS NEEDED (ONLY WHEN NEEDED VERY RARE)
     Dates: start: 201501
  5. SUTENT [Suspect]
     Active Substance: SUNITINIB MALATE
     Indication: RENAL CANCER
     Dosage: 1 DF, DAILY
     Route: 048
     Dates: start: 20160428
  6. SUTENT [Suspect]
     Active Substance: SUNITINIB MALATE
     Dosage: 50 MG, CYCLIC (28 DAYS ON/14 DAYS OFF)
     Dates: start: 20160606
  7. VITAMIN D [Concomitant]
     Active Substance: CHOLECALCIFEROL
     Dosage: UNK
     Dates: start: 20160720
  8. SUTENT [Suspect]
     Active Substance: SUNITINIB MALATE
     Dosage: 37.5 MG, CYCLIC (28 DAYS ON/14 DAYS OFF)
     Dates: end: 20160704
  9. SUTENT [Suspect]
     Active Substance: SUNITINIB MALATE
     Dosage: 37.5 MG, CYCLIC (ONCE A DAY FOR 28 DAYS)
     Dates: start: 20160720, end: 20160817
  10. SUTENT [Suspect]
     Active Substance: SUNITINIB MALATE
     Dosage: 37.5 MG, CYCLIC (37.5 MG, 28 DAYS ON, 14 DAYS OFF)
     Dates: start: 20160721
  11. COZAAR [Concomitant]
     Active Substance: LOSARTAN POTASSIUM
     Dosage: UNK
     Dates: start: 2006

REACTIONS (32)
  - Malaise [Recovered/Resolved]
  - Mutism [Recovered/Resolved]
  - Pruritus [Recovered/Resolved]
  - Headache [Not Recovered/Not Resolved]
  - Incontinence [Not Recovered/Not Resolved]
  - Heart rate increased [Not Recovered/Not Resolved]
  - Oral discomfort [Recovered/Resolved]
  - Hypogeusia [Recovered/Resolved]
  - Neoplasm progression [Unknown]
  - Sensitivity of teeth [Recovered/Resolved]
  - Dizziness postural [Not Recovered/Not Resolved]
  - Mood altered [Recovered/Resolved]
  - Erythema [Recovered/Resolved]
  - Abdominal discomfort [Recovered/Resolved]
  - Urine output increased [Not Recovered/Not Resolved]
  - Blood count abnormal [Recovered/Resolved]
  - Dysuria [Recovered/Resolved]
  - Varicose vein [Recovered/Resolved]
  - Fatigue [Not Recovered/Not Resolved]
  - Asthenia [Not Recovered/Not Resolved]
  - Cardiac disorder [Recovered/Resolved]
  - Dyspnoea [Not Recovered/Not Resolved]
  - Dry skin [Recovered/Resolved]
  - Nasopharyngitis [Recovered/Resolved]
  - Palpitations [Unknown]
  - Vomiting [Recovered/Resolved]
  - Weight decreased [Recovered/Resolved]
  - Memory impairment [Recovered/Resolved]
  - Neuropathy peripheral [Unknown]
  - Quality of life decreased [Unknown]
  - Diarrhoea [Not Recovered/Not Resolved]
  - Cystitis [Recovered/Resolved]

NARRATIVE: CASE EVENT DATE: 2016
